FAERS Safety Report 5196612-0 (Version None)
Quarter: 2006Q4

REPORT INFORMATION
  Report Type: 
  Country: None (occurrence: None)
  Receive Date: 20061229
  Receipt Date: 20061229
  Transmission Date: 20070319
  Serious: Yes (Hospitalization)
  Sender: FDA-Public Use
  Company Number: None

PATIENT
  Sex: Male
  Weight: 65.7716 kg

DRUGS (1)
  1. CETUXIMAB 400 MG/M2 [Suspect]
     Indication: BILE DUCT CANCER
     Dosage: 400 MG/M2 WEEKLY IV
     Route: 042
     Dates: start: 20061206, end: 20061213

REACTIONS (16)
  - ABDOMINAL PAIN UPPER [None]
  - BLOOD ALBUMIN DECREASED [None]
  - BLOOD ALKALINE PHOSPHATASE ABNORMAL [None]
  - BLOOD BILIRUBIN ABNORMAL [None]
  - CHILLS [None]
  - COMPUTERISED TOMOGRAM ABNORMAL [None]
  - DISEASE PROGRESSION [None]
  - DYSPNOEA [None]
  - FATIGUE [None]
  - HAEMOGLOBIN ABNORMAL [None]
  - HEADACHE [None]
  - HEPATIC LESION [None]
  - HYPERHIDROSIS [None]
  - HYPOALBUMINAEMIA [None]
  - PAIN [None]
  - PYREXIA [None]
